FAERS Safety Report 15806594 (Version 14)
Quarter: 2020Q1

REPORT INFORMATION
  Report Type: Report from Study
  Country: CA (occurrence: CA)
  Receive Date: 20190110
  Receipt Date: 20200226
  Transmission Date: 20200409
  Serious: Yes (Other)
  Sender: FDA-Public Use
  Company Number: CA-SA-2018SA395407

PATIENT
  Age: 48 Year
  Sex: Female

DRUGS (9)
  1. NORTRIPTYLINE [Concomitant]
     Active Substance: NORTRIPTYLINE
     Dosage: UNK
     Route: 065
  2. METHYLPREDNISOLONE. [Concomitant]
     Active Substance: METHYLPREDNISOLONE
     Indication: PREMEDICATION
     Dosage: 1 G
     Route: 042
     Dates: start: 20181219, end: 20181221
  3. ACYCLOVIR [ACICLOVIR] [Concomitant]
     Active Substance: ACYCLOVIR
     Indication: PREMEDICATION
     Dosage: 200 MG, BID
     Route: 048
     Dates: start: 20181219
  4. RANITIDINE. [Concomitant]
     Active Substance: RANITIDINE
     Indication: PREMEDICATION
     Dosage: 150 MG, BID
     Route: 048
     Dates: start: 20181219, end: 20181221
  5. CBD OIL [Concomitant]
     Active Substance: CANNABIDIOL\HERBALS
     Dosage: UNK
     Route: 065
  6. TYLENOL [Concomitant]
     Active Substance: ACETAMINOPHEN
     Indication: PREMEDICATION
     Dosage: 975 MG
     Route: 048
     Dates: start: 20181219, end: 20181221
  7. REACTINE [CETIRIZINE HYDROCHLORIDE] [Concomitant]
     Active Substance: CETIRIZINE HYDROCHLORIDE
     Indication: PREMEDICATION
     Dosage: 10 MG, BID
     Route: 048
     Dates: start: 20181218, end: 20181221
  8. METHOTREXATE. [Concomitant]
     Active Substance: METHOTREXATE
     Dosage: UNK, UNK
     Route: 048
  9. ALEMTUZUMAB [Suspect]
     Active Substance: ALEMTUZUMAB
     Indication: RELAPSING-REMITTING MULTIPLE SCLEROSIS
     Dosage: 12 MG, QD
     Route: 041
     Dates: start: 20181219, end: 20181221

REACTIONS (19)
  - Rhinorrhoea [Recovering/Resolving]
  - White blood cells urine positive [Recovered/Resolved]
  - Red blood cell count increased [Recovered/Resolved]
  - Lymphocyte count decreased [Recovered/Resolved]
  - Cough [Recovering/Resolving]
  - Musculoskeletal chest pain [Not Recovered/Not Resolved]
  - Pain in extremity [Recovered/Resolved]
  - Tachycardia [Recovered/Resolved]
  - Haematochezia [Recovered/Resolved]
  - Pneumonia [Recovering/Resolving]
  - Malaise [Not Recovered/Not Resolved]
  - Band sensation [Recovering/Resolving]
  - Headache [Recovered/Resolved]
  - Crying [Recovered/Resolved]
  - C-reactive protein increased [Not Recovered/Not Resolved]
  - Infusion site pain [Recovered/Resolved]
  - Anxiety [Recovered/Resolved]
  - Protein urine present [Recovered/Resolved]
  - Pyrexia [Recovered/Resolved]

NARRATIVE: CASE EVENT DATE: 20181219
